FAERS Safety Report 14688312 (Version 2)
Quarter: 2018Q2

REPORT INFORMATION
  Report Type: Spontaneous
  Country: US (occurrence: US)
  Receive Date: 20180328
  Receipt Date: 20180513
  Transmission Date: 20180711
  Serious: No
  Sender: FDA-Public Use
  Company Number: US-009507513-1803USA000246

PATIENT
  Age: 31 Year
  Sex: Female
  Weight: 87.08 kg

DRUGS (3)
  1. NEXPLANON [Suspect]
     Active Substance: ETONOGESTREL
     Dosage: 1 ROD, UNK
     Route: 059
     Dates: end: 20180129
  2. NEXPLANON [Suspect]
     Active Substance: ETONOGESTREL
     Dosage: 1 ROD, UNK
     Route: 059
     Dates: start: 20180227
  3. NEXPLANON [Suspect]
     Active Substance: ETONOGESTREL
     Dosage: 1 ROD, UNK
     Route: 059
     Dates: start: 20180129, end: 20180227

REACTIONS (5)
  - Implant site abscess [Unknown]
  - Implant site infection [Unknown]
  - Device expulsion [Recovered/Resolved]
  - Implant site erythema [Unknown]
  - Device deployment issue [Recovered/Resolved with Sequelae]

NARRATIVE: CASE EVENT DATE: 2018
